FAERS Safety Report 12581901 (Version 2)
Quarter: 2016Q3

REPORT INFORMATION
  Report Type: Report from Study
  Country: US (occurrence: US)
  Receive Date: 20160722
  Receipt Date: 20160928
  Transmission Date: 20161109
  Serious: No
  Sender: FDA-Public Use
  Company Number: PHEH2016US017723

PATIENT
  Sex: Female

DRUGS (2)
  1. COSENTYX [Suspect]
     Active Substance: SECUKINUMAB
     Dosage: 300 MG, UNK
     Route: 065
     Dates: start: 201609
  2. COSENTYX [Suspect]
     Active Substance: SECUKINUMAB
     Indication: PRODUCT USED FOR UNKNOWN INDICATION
     Dosage: 300 MG, UNK
     Route: 065

REACTIONS (7)
  - Abdominal pain upper [Unknown]
  - Skin exfoliation [Unknown]
  - Drug ineffective [Unknown]
  - Psoriasis [Unknown]
  - Skin fissures [Unknown]
  - Diarrhoea [Unknown]
  - Drug effect incomplete [Unknown]
